FAERS Safety Report 5820059-4 (Version None)
Quarter: 2008Q3

REPORT INFORMATION
  Report Type: 
  Country: None (occurrence: None)
  Receive Date: 20080724
  Receipt Date: 20080714
  Transmission Date: 20090109
  Serious: Yes (Other)
  Sender: FDA-Public Use
  Company Number: US-JNJFOC-20080602769

PATIENT
  Sex: Male

DRUGS (9)
  1. RISPERDAL [Suspect]
     Indication: PAIN
     Route: 048
  2. MIRTAZAPINE [Suspect]
     Indication: DRUG USE FOR UNKNOWN INDICATION
     Route: 065
  3. LYRICA [Suspect]
     Indication: DRUG USE FOR UNKNOWN INDICATION
     Route: 065
  4. ARICEPT [Suspect]
     Indication: DRUG USE FOR UNKNOWN INDICATION
     Route: 065
  5. CODEINE SUL TAB [Concomitant]
     Indication: MULTIPLE ALLERGIES
  6. CLARINEX [Concomitant]
     Indication: MULTIPLE ALLERGIES
  7. LUNESTA [Concomitant]
     Indication: SLEEP DISORDER
  8. ACETAMINOPHEN [Concomitant]
     Indication: PAIN
  9. PENTETRAZOL [Concomitant]
     Indication: DRUG USE FOR UNKNOWN INDICATION

REACTIONS (3)
  - ANGER [None]
  - HALLUCINATION [None]
  - PARANOIA [None]
